FAERS Safety Report 20317679 (Version 1)
Quarter: 2022Q1

REPORT INFORMATION
  Report Type: Spontaneous
  Country: FR (occurrence: FR)
  Receive Date: 20220110
  Receipt Date: 20220110
  Transmission Date: 20220423
  Serious: Yes (Hospitalization, Congenital Anomaly, Other)
  Sender: FDA-Public Use
  Company Number: FR-ABBVIE-21K-056-4107453-00

PATIENT
  Sex: Male

DRUGS (2)
  1. VALPROATE SODIUM [Suspect]
     Active Substance: VALPROATE SODIUM
     Indication: Maternal exposure timing unspecified
     Route: 064
  2. VALPROATE SODIUM [Suspect]
     Active Substance: VALPROATE SODIUM
     Indication: Maternal exposure timing unspecified
     Route: 064

REACTIONS (41)
  - Bronchiolitis [Unknown]
  - Juvenile myoclonic epilepsy [Unknown]
  - Dysmorphism [Unknown]
  - Language disorder [Unknown]
  - Disturbance in attention [Unknown]
  - Disturbance in attention [Unknown]
  - Impaired reasoning [Unknown]
  - Cognitive disorder [Unknown]
  - Memory impairment [Unknown]
  - Psychomotor hyperactivity [Unknown]
  - Learning disorder [Unknown]
  - Speech disorder [Unknown]
  - Epilepsy [Unknown]
  - Sleep disorder [Unknown]
  - Myoclonus [Not Recovered/Not Resolved]
  - Dyskinesia [Unknown]
  - Bronchitis [Unknown]
  - Learning disorder [Unknown]
  - Fall [Unknown]
  - Pharyngeal erythema [Unknown]
  - Malaise [Unknown]
  - Rhinitis [Unknown]
  - Nasopharyngitis [Unknown]
  - Ear infection [Unknown]
  - Cough [Unknown]
  - Pyrexia [Unknown]
  - Rhinitis allergic [Unknown]
  - Gastrooesophageal reflux disease [Unknown]
  - Bronchitis viral [Unknown]
  - Pharyngitis [Unknown]
  - Muscle spasms [Unknown]
  - Muscle twitching [Unknown]
  - Hyperventilation [Unknown]
  - Electroencephalogram abnormal [Unknown]
  - Vomiting [Unknown]
  - Asthenia [Unknown]
  - Enuresis [Not Recovered/Not Resolved]
  - Obesity [Unknown]
  - Overweight [Unknown]
  - Cough [Unknown]
  - Foetal exposure during pregnancy [Unknown]

NARRATIVE: CASE EVENT DATE: 19970901
